FAERS Safety Report 4300936-6 (Version None)
Quarter: 2004Q1

REPORT INFORMATION
  Report Type: 
  Country: None (occurrence: None)
  Receive Date: 20040218
  Receipt Date: 20040114
  Transmission Date: 20041129
  Serious: No
  Sender: FDA-Public Use
  Company Number: 2004-01-0672

PATIENT
  Age: 61 Year
  Sex: Male

DRUGS (2)
  1. PEG-INTRON [Suspect]
     Dosage: 120 MCG SUBCUTANEOUS
     Route: 058
     Dates: start: 20030501
  2. REBETOL [Suspect]
     Dosage: ORAL
     Route: 048
     Dates: start: 20030501

REACTIONS (2)
  - DYSPNOEA [None]
  - RED BLOOD CELL COUNT DECREASED [None]
